FAERS Safety Report 14303964 (Version 1)
Quarter: 2017Q4

REPORT INFORMATION
  Report Type: Spontaneous
  Country: JP (occurrence: JP)
  Receive Date: 20171219
  Receipt Date: 20171219
  Transmission Date: 20180321
  Serious: Yes (Hospitalization)
  Sender: FDA-Public Use
  Company Number: JP-OTSUKA-JP-2013-13461

PATIENT
  Age: 30 Year
  Sex: Female
  Weight: 57 kg

DRUGS (8)
  1. TASMOLIN [Concomitant]
     Active Substance: BIPERIDEN
     Dosage: 3 MG, TID
     Route: 048
  2. LEXOTAN [Suspect]
     Active Substance: BROMAZEPAM
     Dosage: 30 MG, TID
     Route: 048
  3. HIRNAMIN [Concomitant]
     Active Substance: PHENOTHIAZINE
     Dosage: 20 MG, QD
     Route: 048
  4. LEVOMEPROMAZINE [Concomitant]
     Active Substance: LEVOMEPROMAZINE
     Dosage: TABLET, 5MG
     Route: 048
  5. ABILIFY [Suspect]
     Active Substance: ARIPIPRAZOLE
     Indication: DEPRESSION
     Dosage: 12 MG, QD
     Route: 048
  6. ANAFRANIL [Concomitant]
     Active Substance: CLOMIPRAMINE HYDROCHLORIDE
     Dosage: 100 MG, QD
     Route: 048
  7. JZOLOFT [Concomitant]
     Active Substance: SERTRALINE HYDROCHLORIDE
     Dosage: 50 MG, QD
     Route: 048
  8. SERTRALINE [Concomitant]
     Active Substance: SERTRALINE HYDROCHLORIDE
     Dosage: TABLET, 50MG
     Route: 048

REACTIONS (2)
  - Road traffic accident [Unknown]
  - Depressed level of consciousness [Recovered/Resolved]

NARRATIVE: CASE EVENT DATE: 20130829
